FAERS Safety Report 6318758-3 (Version None)
Quarter: 2009Q3

REPORT INFORMATION
  Report Type: 
  Country: None (occurrence: None)
  Receive Date: 20090821
  Receipt Date: 20090814
  Transmission Date: 20100115
  Serious: Yes (Other)
  Sender: FDA-Public Use
  Company Number: US-AMGEN-QUU358574

PATIENT
  Sex: Male
  Weight: 124.7 kg

DRUGS (11)
  1. ENBREL [Suspect]
     Indication: RHEUMATOID ARTHRITIS
     Route: 058
     Dates: start: 20030306
  2. ASPIRIN [Suspect]
  3. FISH OIL [Suspect]
  4. NABUMETONE [Suspect]
  5. HYZAAR [Concomitant]
  6. AMLODIPINE [Concomitant]
  7. METOPROLOL [Concomitant]
  8. VYTORIN [Concomitant]
  9. TRICOR [Concomitant]
  10. LORTAB [Concomitant]
  11. ZONISAMIDE [Concomitant]

REACTIONS (8)
  - EYE HAEMORRHAGE [None]
  - IMPAIRED HEALING [None]
  - LACERATION [None]
  - RETINAL DETACHMENT [None]
  - SCLERAL DISORDER [None]
  - UPPER RESPIRATORY TRACT INFECTION [None]
  - VISION BLURRED [None]
  - VISUAL ACUITY REDUCED [None]
